FAERS Safety Report 20489402 (Version 1)
Quarter: 2022Q1

REPORT INFORMATION
  Report Type: Spontaneous
  Country: US (occurrence: None)
  Receive Date: 20220217
  Receipt Date: 20220217
  Transmission Date: 20220423
  Serious: Yes (Hospitalization)
  Sender: FDA-Public Use
  Company Number: None

PATIENT
  Age: 20 Month
  Sex: Male

DRUGS (1)
  1. VIGABATRIN [Suspect]
     Active Substance: VIGABATRIN
     Dosage: MIX 2 PACKERS IN 20ML WATER AND GIVE 10.5ML BY MOUTH 2 TIME DAILY
     Dates: start: 202105

REACTIONS (2)
  - Vomiting [None]
  - Therapy interrupted [None]

NARRATIVE: CASE EVENT DATE: 20220125
